FAERS Safety Report 5973816-8 (Version None)
Quarter: 2008Q4

REPORT INFORMATION
  Report Type: 
  Country: None (occurrence: None)
  Receive Date: 20081201
  Receipt Date: 20081120
  Transmission Date: 20090506
  Serious: Yes (Hospitalization)
  Sender: FDA-Public Use
  Company Number: NL-AMGEN-US320654

PATIENT
  Age: 8 Year
  Sex: Female

DRUGS (3)
  1. ENBREL [Suspect]
     Indication: JUVENILE ARTHRITIS
     Dosage: 25 MG, FREQUENCY UNKNOWN
     Dates: start: 20000601, end: 20000901
  2. PREDNISONE TAB [Concomitant]
     Dosage: 5 MG, FREQUENCY UNKNOWN
  3. METHOTREXATE [Concomitant]
     Dosage: 2.5 MG, FREQUENCY UNKNOWN

REACTIONS (1)
  - CROHN'S DISEASE [None]
